FAERS Safety Report 13740883 (Version 3)
Quarter: 2019Q1

REPORT INFORMATION
  Report Type: Spontaneous
  Country: US (occurrence: US)
  Receive Date: 20170711
  Receipt Date: 20190124
  Transmission Date: 20190417
  Serious: No
  Sender: FDA-Public Use
  Company Number: US-PFIZER INC-2017294201

PATIENT
  Age: 14 Year
  Sex: Female
  Weight: 3.56 kg

DRUGS (9)
  1. GENOTROPIN [Suspect]
     Active Substance: SOMATROPIN
     Dosage: 1.3 MG, DAILY
     Dates: end: 20170704
  2. GENOTROPIN [Suspect]
     Active Substance: SOMATROPIN
     Dosage: 1.3 MG, DAILY
     Route: 058
     Dates: start: 20160301
  3. CHOLECALCIFEROL [Concomitant]
     Active Substance: CHOLECALCIFEROL
     Indication: HYPOVITAMINOSIS
     Dosage: 2000 IU, DAILY
     Dates: start: 20151209
  4. GENOTROPIN [Suspect]
     Active Substance: SOMATROPIN
     Indication: GROWTH HORMONE DEFICIENCY
     Dosage: 1.2 MG ONE DAY AND THEN 1.4 MG ONE A DAY THE NEXT, ALTERNATE DOSE DUE TO ODD NUMBER
     Dates: start: 201603
  5. CIMETIDINE [Concomitant]
     Active Substance: CIMETIDINE
     Indication: GASTRITIS
     Dosage: 5 ML, 2X/DAY
     Route: 048
  6. GENOTROPIN [Suspect]
     Active Substance: SOMATROPIN
     Dosage: 1.2 MG, ALTERNATE DAY
  7. DULERA [Concomitant]
     Active Substance: FORMOTEROL FUMARATE DIHYDRATE\MOMETASONE FUROATE
     Indication: ASTHMA
     Dosage: UNK, (2 PUFFS 2 TIMES DAILY)
  8. GENOTROPIN [Suspect]
     Active Substance: SOMATROPIN
     Dosage: 1.4 MG, ALTERNATE DAY
  9. GENOTROPIN [Suspect]
     Active Substance: SOMATROPIN
     Dosage: 1.2 MG ONE DAY AND THEN 1.4 MG ONE A DAY THE NEXT, ALTERNATE DOSE DUE TO ODD NUMBER
     Dates: start: 201603

REACTIONS (2)
  - Blood alkaline phosphatase increased [Unknown]
  - Vitamin D decreased [Unknown]

NARRATIVE: CASE EVENT DATE: 20180727
